FAERS Safety Report 6995331 (Version 2)
Quarter: 2020Q3

REPORT INFORMATION
  Report Type: Spontaneous
  Country: CZ (occurrence: CZ)
  Receive Date: 20090515
  Receipt Date: 20090529
  Transmission Date: 20201104
  Serious: Yes (Other)
  Sender: FDA-Public Use
  Company Number: CZ-ROCHE-631150

PATIENT
  Age: 56 Year
  Sex: Female

DRUGS (4)
  1. CLODRONATE DISODIUM [Concomitant]
     Active Substance: CLODRONATE DISODIUM
     Route: 048
     Dates: start: 20081124
  2. AROMASIN [Concomitant]
     Active Substance: EXEMESTANE
     Dates: start: 20071001, end: 20081123
  3. IBANDRONIC ACID. [Suspect]
     Active Substance: IBANDRONIC ACID
     Indication: PROPHYLAXIS
     Route: 042
     Dates: start: 20080422, end: 20080902
  4. FASLODEX [Concomitant]
     Active Substance: FULVESTRANT
     Route: 030
     Dates: start: 20080124

REACTIONS (2)
  - Periodontitis [Recovering/Resolving]
  - Osteonecrosis [Recovering/Resolving]

NARRATIVE: CASE EVENT DATE: 20080901
